FAERS Safety Report 8431556-X (Version None)
Quarter: 2012Q2

REPORT INFORMATION
  Report Type: 
  Country: None (occurrence: None)
  Receive Date: 20120323
  Receipt Date: 20111013
  Transmission Date: 20120825
  Serious: Yes (Other)
  Sender: FDA-Public Use
  Company Number: 163-21880-11062769

PATIENT
  Age: 69 Year
  Sex: Male

DRUGS (5)
  1. ARIXTRA [Concomitant]
  2. REVLIMID [Suspect]
     Indication: MULTIPLE MYELOMA
     Dosage: 25 MG, DAYS 1-21, PO; 10 MG, DAILY FOR 28 DAYS, PO; 25 MG, DAILY FOR 21 DAYS, PO
     Route: 048
     Dates: start: 20081101
  3. REVLIMID [Suspect]
     Indication: MULTIPLE MYELOMA
     Dosage: 25 MG, DAYS 1-21, PO; 10 MG, DAILY FOR 28 DAYS, PO; 25 MG, DAILY FOR 21 DAYS, PO
     Route: 048
     Dates: start: 20110901
  4. METFFORMIN HYDROCHLORIDE [Concomitant]
  5. ACTOS [Concomitant]

REACTIONS (2)
  - RENAL FAILURE [None]
  - PULMONARY EMBOLISM [None]
